FAERS Safety Report 9767552 (Version 1)
Quarter: 2013Q4

REPORT INFORMATION
  Report Type: Spontaneous
  Country: GB (occurrence: GB)
  Receive Date: 20131217
  Receipt Date: 20131217
  Transmission Date: 20140711
  Serious: Yes (Other)
  Sender: FDA-Public Use
  Company Number: GB-ACTAVIS-2013-22526

PATIENT
  Age: 65 Year
  Sex: Male

DRUGS (1)
  1. CLOPIDOGREL BISULFATE (UNKNOWN) [Suspect]
     Indication: ATRIAL FIBRILLATION
     Dosage: UNK, UNK
     Route: 065

REACTIONS (2)
  - Diabetes mellitus [Unknown]
  - Drug dose omission [Unknown]
